FAERS Safety Report 9967967 (Version 1)
Quarter: 2014Q1

REPORT INFORMATION
  Report Type: Report from Study
  Country: US (occurrence: US)
  Receive Date: 20140306
  Receipt Date: 20140306
  Transmission Date: 20141002
  Serious: No
  Sender: FDA-Public Use
  Company Number: US-ABBVIE-13P-163-1147639-00

PATIENT
  Age: 17 Year
  Sex: Male

DRUGS (7)
  1. HUMIRA [Suspect]
     Indication: COLITIS ULCERATIVE
     Dosage: 4-40MG PEN
     Dates: start: 20130912, end: 20130912
  2. HUMIRA [Suspect]
     Dosage: 4-40MG PEN
  3. DILAUDID [Concomitant]
     Indication: ABDOMINAL PAIN
  4. PHENERGAN [Concomitant]
     Indication: NAUSEA
  5. ADDERALL [Concomitant]
     Indication: ATTENTION DEFICIT/HYPERACTIVITY DISORDER
  6. ATIVAN [Concomitant]
     Indication: ANXIETY
  7. ADVAIR [Concomitant]
     Indication: ASTHMA
     Dosage: 100/50 DAILY

REACTIONS (1)
  - Body temperature increased [Not Recovered/Not Resolved]
